FAERS Safety Report 23395510 (Version 2)
Quarter: 2024Q1

REPORT INFORMATION
  Report Type: Spontaneous
  Country: GB (occurrence: GB)
  Receive Date: 20240112
  Receipt Date: 20240223
  Transmission Date: 20240410
  Serious: Yes (Hospitalization, Other)
  Sender: FDA-Public Use
  Company Number: GB-drreddys-SPO/UKI/23/0187889

PATIENT
  Age: 36 Year
  Sex: Male

DRUGS (3)
  1. SUMATRIPTAN [Suspect]
     Active Substance: SUMATRIPTAN
     Indication: Atypical migraine
     Dosage: TAKE ON FOR MIGRAINE ATTACK. IF SYMPTOMS COME BACK, TAKE ONE TABLET AT LEAST 2HRS AFTER DOSE.
     Route: 048
     Dates: start: 20170315
  2. ACETAMINOPHEN [Concomitant]
     Active Substance: ACETAMINOPHEN
     Indication: Product used for unknown indication
     Dates: start: 20170315
  3. CYCLIZINE [Concomitant]
     Active Substance: CYCLIZINE
     Indication: Product used for unknown indication
     Dates: start: 20170315

REACTIONS (2)
  - Cerebrovascular accident [Recovering/Resolving]
  - Headache [Recovering/Resolving]

NARRATIVE: CASE EVENT DATE: 20170316
